FAERS Safety Report 13603303 (Version 1)
Quarter: 2017Q2

REPORT INFORMATION
  Report Type: Spontaneous
  Country: US (occurrence: US)
  Receive Date: 20170601
  Receipt Date: 20170601
  Transmission Date: 20170830
  Serious: Yes (Life-Threatening, Other)
  Sender: FDA-Public Use
  Company Number: US-PFIZER INC-2015387922

PATIENT
  Age: 47 Year
  Sex: Female

DRUGS (1)
  1. AZITHROMYCIN ANHYDROUS. [Suspect]
     Active Substance: AZITHROMYCIN ANHYDROUS
     Indication: ANTIBIOTIC THERAPY
     Dosage: UNK

REACTIONS (2)
  - Long QT syndrome [Recovered/Resolved]
  - Sudden cardiac death [Recovered/Resolved]
